FAERS Safety Report 7797397-1 (Version None)
Quarter: 2011Q4

REPORT INFORMATION
  Report Type: 
  Country: None (occurrence: None)
  Receive Date: 20111005
  Receipt Date: 20110928
  Transmission Date: 20120403
  Serious: Yes (Hospitalization)
  Sender: FDA-Public Use
  Company Number: JP-PFIZER INC-2011233347

PATIENT
  Age: 66 Year
  Sex: Male

DRUGS (2)
  1. DOXORUBICIN HYDROCHLORIDE [Suspect]
     Indication: ADULT T-CELL LYMPHOMA/LEUKAEMIA
     Dosage: 40 MG/M2 PER 1/4 WEEK
     Route: 041
  2. DOXORUBICIN HYDROCHLORIDE [Suspect]
     Dosage: 30 MG/M2 PER 1/4 WEEK
     Route: 041

REACTIONS (1)
  - HERPES ZOSTER [None]
